FAERS Safety Report 5905579-6 (Version None)
Quarter: 2008Q3

REPORT INFORMATION
  Report Type: 
  Country: None (occurrence: None)
  Receive Date: 20080909
  Receipt Date: 20080115
  Transmission Date: 20090109
  Serious: Yes (Death, Hospitalization)
  Sender: FDA-Public Use
  Company Number: 163-20785-07120049

PATIENT
  Age: 65 Year
  Sex: Male

DRUGS (7)
  1. THALOMID [Suspect]
     Indication: MULTIPLE MYELOMA
     Dosage: 100 MG, 2 IN 1 D, ORAL ; 100 MG, 2 IN 1 D, ORAL ; 50 MG, DAILY, ORAL
     Route: 048
     Dates: start: 20070701, end: 20070716
  2. THALOMID [Suspect]
     Indication: MULTIPLE MYELOMA
     Dosage: 100 MG, 2 IN 1 D, ORAL ; 100 MG, 2 IN 1 D, ORAL ; 50 MG, DAILY, ORAL
     Route: 048
     Dates: start: 20070620, end: 20070901
  3. THALOMID [Suspect]
     Indication: MULTIPLE MYELOMA
     Dosage: 100 MG, 2 IN 1 D, ORAL ; 100 MG, 2 IN 1 D, ORAL ; 50 MG, DAILY, ORAL
     Route: 048
     Dates: start: 20071009, end: 20071022
  4. DEXAMETHASONE TAB [Concomitant]
  5. HYDROCORTISONE [Concomitant]
  6. PREVACID [Concomitant]
  7. CARAFATE [Concomitant]

REACTIONS (16)
  - ABDOMINAL PAIN [None]
  - ANOREXIA [None]
  - ASTHENIA [None]
  - BACK PAIN [None]
  - CARDIAC ARREST [None]
  - DISEASE PROGRESSION [None]
  - FATIGUE [None]
  - GROIN PAIN [None]
  - MULTIPLE MYELOMA [None]
  - MUSCULOSKELETAL PAIN [None]
  - NAUSEA [None]
  - NERVOUSNESS [None]
  - SEPSIS [None]
  - STOMACH DISCOMFORT [None]
  - TREMOR [None]
  - VOMITING [None]
